FAERS Safety Report 17524648 (Version 1)
Quarter: 2020Q1

REPORT INFORMATION
  Report Type: Spontaneous
  Country: None (occurrence: TH)
  Receive Date: 20200310
  Receipt Date: 20200310
  Transmission Date: 20200409
  Serious: Yes (Other)
  Sender: FDA-Public Use
  Company Number: TH-POPULATION COUNCIL, INC.-2081481

PATIENT
  Age: 30 Year
  Weight: 57 kg

DRUGS (1)
  1. JADELLE [Suspect]
     Active Substance: LEVONORGESTREL
     Route: 059
     Dates: start: 20160530, end: 20200303

REACTIONS (1)
  - Pregnancy with implant contraceptive [Not Recovered/Not Resolved]
